FAERS Safety Report 8217736 (Version 3)
Quarter: 2013Q2

REPORT INFORMATION
  Report Type: Spontaneous
  Country: GB (occurrence: None)
  Receive Date: 20111024
  Receipt Date: 20130618
  Transmission Date: 20140414
  Serious: Yes (Other)
  Sender: FDA-Public Use
  Company Number: ABR_00273_2011

PATIENT
  Age: 69 Year
  Sex: Male
  Weight: 98 kg

DRUGS (9)
  1. ERYTHROMYCIN [Suspect]
     Indication: FOLLICULITIS
     Dosage: (500 MG QID)
     Dates: start: 20110801, end: 20110808
  2. ALLEVYN [Concomitant]
  3. GABAPENTIN [Concomitant]
  4. IODOFLEX [Concomitant]
  5. LYMECYCLINE [Concomitant]
  6. NOVOLOG MIX 70/30 [Concomitant]
  7. PARACETAMOL [Concomitant]
  8. RAMIPRIL [Concomitant]
  9. TRAMADOL HYDROCHLORIDE [Concomitant]

REACTIONS (4)
  - SKIN ULCER [None]
  - SKIN LESION [None]
  - TOXIC EPIDERMAL NECROLYSIS [None]
  - Blister [None]
